FAERS Safety Report 9690773 (Version 1)
Quarter: 2013Q4

REPORT INFORMATION
  Report Type: Spontaneous
  Country: NZ (occurrence: NZ)
  Receive Date: 20131115
  Receipt Date: 20131115
  Transmission Date: 20140711
  Serious: Yes (Other)
  Sender: FDA-Public Use
  Company Number: NZ-PFIZER INC-2013324215

PATIENT
  Sex: Female

DRUGS (1)
  1. EFEXOR XR [Suspect]
     Dosage: UNK

REACTIONS (2)
  - Gastrointestinal disorder [Unknown]
  - Medication residue present [Unknown]
